FAERS Safety Report 18951053 (Version 1)
Quarter: 2021Q1

REPORT INFORMATION
  Report Type: Spontaneous
  Country: US (occurrence: US)
  Receive Date: 20210228
  Receipt Date: 20210228
  Transmission Date: 20210420
  Serious: No
  Sender: FDA-Public Use
  Company Number: US-SA-2021SA065405

PATIENT
  Age: 56 Year
  Sex: Male

DRUGS (6)
  1. DUPIXENT [Suspect]
     Active Substance: DUPILUMAB
     Indication: DERMATITIS ATOPIC
     Dosage: 300 MG, QOW
     Route: 058
     Dates: start: 20190807
  2. FLUOCINONIDE. [Concomitant]
     Active Substance: FLUOCINONIDE
  3. GABAPENTIN. [Concomitant]
     Active Substance: GABAPENTIN
  4. KEFLEXIN [Concomitant]
     Active Substance: CEPHALEXIN
  5. MONTELUKAST [Concomitant]
     Active Substance: MONTELUKAST SODIUM
     Indication: ASTHMA
  6. FLOVENT [Concomitant]
     Active Substance: FLUTICASONE PROPIONATE

REACTIONS (2)
  - Product dose omission issue [Unknown]
  - Psoriasis [Unknown]
